FAERS Safety Report 9223698 (Version 1)
Quarter: 2013Q2

REPORT INFORMATION
  Report Type: Spontaneous
  Country: US (occurrence: US)
  Receive Date: 20130410
  Receipt Date: 20130410
  Transmission Date: 20140414
  Serious: No
  Sender: FDA-Public Use
  Company Number: US-B.I. PHARMACEUTICALS,INC./RIDGEFIELD-2013-BI-09512BP

PATIENT
  Sex: Male

DRUGS (1)
  1. MOBIC [Suspect]

REACTIONS (4)
  - Pain [Unknown]
  - Middle insomnia [Unknown]
  - Local swelling [Unknown]
  - Arthralgia [Unknown]
